FAERS Safety Report 15948650 (Version 1)
Quarter: 2019Q1

REPORT INFORMATION
  Report Type: Spontaneous
  Country: DE (occurrence: DE)
  Receive Date: 20190211
  Receipt Date: 20190211
  Transmission Date: 20190417
  Serious: Yes (Death)
  Sender: FDA-Public Use
  Company Number: DE-SHIRE-DE201904224

PATIENT

DRUGS (4)
  1. METHYLPREDNISOLONE. [Suspect]
     Active Substance: METHYLPREDNISOLONE
     Indication: THROMBOCYTOPENIA
     Dosage: 1 MG/KG (96MG TOTAL)
     Route: 042
     Dates: start: 20171208, end: 20171229
  2. VITAMIN B12 [Suspect]
     Active Substance: CYANOCOBALAMIN
     Indication: THROMBOCYTOPENIA
     Dosage: UNK
     Route: 042
     Dates: start: 20171208, end: 20171229
  3. KIOVIG [Suspect]
     Active Substance: HUMAN IMMUNOGLOBULIN G
     Indication: THROMBOCYTOPENIA
     Dosage: 30 MG, QD (0.3MG/KG)
     Route: 042
     Dates: start: 20171215, end: 20171217
  4. FOLIC ACID. [Suspect]
     Active Substance: FOLIC ACID
     Indication: THROMBOCYTOPENIA
     Dosage: UNK
     Route: 065
     Dates: start: 20171208, end: 20171229

REACTIONS (1)
  - Drug ineffective for unapproved indication [Fatal]
